FAERS Safety Report 7551876-0 (Version None)
Quarter: 2011Q2

REPORT INFORMATION
  Report Type: 
  Country: None (occurrence: None)
  Receive Date: 20110616
  Receipt Date: 20110608
  Transmission Date: 20111010
  Serious: Yes (Other)
  Sender: FDA-Public Use
  Company Number: PHHY2011GB44424

PATIENT
  Age: 50 Year
  Sex: Male

DRUGS (4)
  1. SIMVASTATIN [Suspect]
     Dosage: 80 MG, UNK
  2. ROSIGLITAZONE [Interacting]
     Dosage: 4 MG, UNK
  3. FENOFIBRATE [Interacting]
     Dosage: 267 MG, UNK
  4. ATORVASTATIN [Interacting]
     Dosage: 40 MG, UNK

REACTIONS (2)
  - HIGH DENSITY LIPOPROTEIN DECREASED [None]
  - DRUG INTERACTION [None]
